FAERS Safety Report 5213353-1 (Version None)
Quarter: 2007Q1

REPORT INFORMATION
  Report Type: 
  Country: None (occurrence: None)
  Receive Date: 20070119
  Receipt Date: 20060627
  Transmission Date: 20070707
  Serious: No
  Sender: FDA-Public Use
  Company Number: US-GLAXOSMITHKLINE-A0610511A

PATIENT
  Sex: Female

DRUGS (8)
  1. ARIXTRA [Suspect]
  2. DEMEROL [Concomitant]
  3. LUNESTA [Concomitant]
  4. DEXAMETHASONE [Concomitant]
  5. DIPHENHYDRAMINE HCL [Concomitant]
  6. CARBOPLATIN [Concomitant]
  7. ETOPOSIDE [Concomitant]
  8. CIMETIDINE HCL [Concomitant]

REACTIONS (1)
  - WEIGHT INCREASED [None]
